FAERS Safety Report 23060286 (Version 2)
Quarter: 2023Q4

REPORT INFORMATION
  Report Type: Spontaneous
  Country: IE (occurrence: IE)
  Receive Date: 20231012
  Receipt Date: 20231023
  Transmission Date: 20240110
  Serious: Yes (Hospitalization, Other)
  Sender: FDA-Public Use
  Company Number: IE-TEVA-2023-IE-2934189

PATIENT
  Age: 41 Year
  Sex: Female

DRUGS (15)
  1. CARBOPLATIN [Suspect]
     Active Substance: CARBOPLATIN
     Indication: Renal cell carcinoma
     Dosage: AREA UNDER THE CURVE 5 ON DAY 1, EVERY 21 DAYS; SCHEDULED TO BE ADMINISTERED FOR 4 CYCLES
     Route: 065
  2. CARBOPLATIN [Suspect]
     Active Substance: CARBOPLATIN
     Indication: Urethral cancer
  3. CARBOPLATIN [Suspect]
     Active Substance: CARBOPLATIN
     Indication: Clear cell renal cell carcinoma
  4. PACLITAXEL [Suspect]
     Active Substance: PACLITAXEL
     Indication: Renal cell carcinoma
     Dosage: 80 MG/M2 ON DAY 1, 8 AND 15 EVERY 21 DAYS; SCHEDULED TO BE ADMINISTERED FOR 4 CYCLES
     Route: 065
  5. PACLITAXEL [Suspect]
     Active Substance: PACLITAXEL
     Indication: Urethral cancer
  6. PACLITAXEL [Suspect]
     Active Substance: PACLITAXEL
     Indication: Clear cell renal cell carcinoma
  7. GEMCITABINE [Suspect]
     Active Substance: GEMCITABINE
     Indication: Renal cell carcinoma
     Route: 065
  8. GEMCITABINE [Suspect]
     Active Substance: GEMCITABINE
     Indication: Urethral cancer
  9. GEMCITABINE [Suspect]
     Active Substance: GEMCITABINE
     Indication: Clear cell renal cell carcinoma
  10. CISPLATIN [Suspect]
     Active Substance: CISPLATIN
     Indication: Renal cell carcinoma
     Dosage: 40 MG/M2 WEEKLY
     Route: 065
     Dates: start: 201905
  11. CISPLATIN [Suspect]
     Active Substance: CISPLATIN
     Indication: Urethral cancer
  12. CISPLATIN [Suspect]
     Active Substance: CISPLATIN
     Indication: Clear cell renal cell carcinoma
  13. NIVOLUMAB [Suspect]
     Active Substance: NIVOLUMAB
     Indication: Clear cell renal cell carcinoma
     Route: 065
  14. NIVOLUMAB [Suspect]
     Active Substance: NIVOLUMAB
     Indication: Urethral cancer
  15. NIVOLUMAB [Suspect]
     Active Substance: NIVOLUMAB
     Indication: Renal cell carcinoma

REACTIONS (3)
  - Drug hypersensitivity [Unknown]
  - Drug ineffective for unapproved indication [Unknown]
  - Off label use [Unknown]
